FAERS Safety Report 22165288 (Version 1)
Quarter: 2023Q2

REPORT INFORMATION
  Report Type: Spontaneous
  Country: US (occurrence: US)
  Receive Date: 20230403
  Receipt Date: 20230403
  Transmission Date: 20230721
  Serious: No
  Sender: FDA-Public Use
  Company Number: US-GLAXOSMITHKLINE-USCH2023014332

PATIENT

DRUGS (2)
  1. EMERGEN-C [Suspect]
     Active Substance: VITAMINS
     Indication: Throat irritation
     Dosage: UNK
     Dates: start: 202303
  2. EMERGEN-C [Suspect]
     Active Substance: VITAMINS
     Indication: Infection

REACTIONS (3)
  - Product use complaint [Unknown]
  - Product use in unapproved indication [Unknown]
  - Drug effective for unapproved indication [Unknown]

NARRATIVE: CASE EVENT DATE: 20230301
